FAERS Safety Report 5930967-1 (Version None)
Quarter: 2008Q4

REPORT INFORMATION
  Report Type: 
  Country: None (occurrence: None)
  Receive Date: 20081003
  Receipt Date: 20071213
  Transmission Date: 20090506
  Serious: Yes (Death, Hospitalization, Other)
  Sender: FDA-Public Use
  Company Number: 2007100962

PATIENT
  Sex: Female
  Weight: 63.5 kg

DRUGS (3)
  1. ADRIAMYCIN PFS [Suspect]
     Indication: BREAST CANCER
     Dates: start: 20070109
  2. CYTOXAN [Suspect]
     Indication: BREAST CANCER
     Dates: start: 20070109
  3. TAXOTERE [Suspect]
     Dates: start: 20070109

REACTIONS (6)
  - CAECITIS [None]
  - COLITIS [None]
  - NEUTROPHIL COUNT DECREASED [None]
  - PLATELET COUNT DECREASED [None]
  - SEPSIS [None]
  - WHITE BLOOD CELL COUNT DECREASED [None]
